FAERS Safety Report 26186444 (Version 1)
Quarter: 2025Q4

REPORT INFORMATION
  Report Type: Spontaneous
  Country: US (occurrence: None)
  Receive Date: 20251219
  Receipt Date: 20251219
  Transmission Date: 20260117
  Serious: Yes (Hospitalization)
  Sender: FDA-CTU
  Company Number: None

PATIENT
  Age: 54 Year
  Sex: Male

DRUGS (1)
  1. APIXABAN [Suspect]
     Active Substance: APIXABAN
     Indication: Deep vein thrombosis
     Dosage: 1 TAB BID PO
     Route: 048
     Dates: start: 20250601, end: 20250626

REACTIONS (3)
  - Embolism venous [None]
  - Treatment failure [None]
  - Pulmonary embolism [None]

NARRATIVE: CASE EVENT DATE: 20250715
